FAERS Safety Report 24219097 (Version 3)
Quarter: 2025Q1

REPORT INFORMATION
  Report Type: Spontaneous
  Country: US (occurrence: US)
  Receive Date: 20240816
  Receipt Date: 20250102
  Transmission Date: 20250409
  Serious: No
  Sender: BAUSCH AND LOMB
  Company Number: US-BAUSCHBL-2024BNL031532

PATIENT
  Age: 75 Year
  Sex: Male

DRUGS (2)
  1. XIIDRA [Suspect]
     Active Substance: LIFITEGRAST
     Indication: Dry eye
     Route: 065
  2. MIEBO [Suspect]
     Active Substance: PERFLUOROHEXYLOCTANE
     Indication: Dry eye
     Route: 065
     Dates: start: 20241217, end: 20241219

REACTIONS (13)
  - Abnormal sensation in eye [Unknown]
  - Vision blurred [Recovered/Resolved]
  - Visual impairment [Recovering/Resolving]
  - Photophobia [Recovering/Resolving]
  - Eye disorder [Unknown]
  - Drug ineffective [Unknown]
  - Product packaging quantity issue [Unknown]
  - Product use complaint [Unknown]
  - Product container issue [Unknown]
  - Product packaging issue [Unknown]
  - Product label issue [Unknown]
  - Circumstance or information capable of leading to medication error [Unknown]
  - Product complaint [Unknown]

NARRATIVE: CASE EVENT DATE: 20241218
